FAERS Safety Report 16122760 (Version 1)
Quarter: 2019Q1

REPORT INFORMATION
  Report Type: Spontaneous
  Country: FR (occurrence: FR)
  Receive Date: 20190327
  Receipt Date: 20190327
  Transmission Date: 20190418
  Serious: Yes (Death)
  Sender: FDA-Public Use
  Company Number: FR-ORPHAN EUROPE-2064735

PATIENT
  Age: 2 Month
  Sex: Female
  Weight: 4.1 kg

DRUGS (5)
  1. ZYMAD [Concomitant]
     Active Substance: CHOLECALCIFEROL
  2. LEVETIRACETAM. [Concomitant]
     Active Substance: LEVETIRACETAM
  3. CYANOCOBALAMIN. [Concomitant]
     Active Substance: CYANOCOBALAMIN
  4. LEVOCARNIL [Concomitant]
     Active Substance: LEVOCARNITINE
  5. CARBAGLU [Suspect]
     Active Substance: CARGLUMIC ACID
     Indication: METHYLMALONIC ACIDURIA
     Route: 048
     Dates: start: 201812, end: 20190201

REACTIONS (1)
  - Sudden infant death syndrome [Fatal]

NARRATIVE: CASE EVENT DATE: 20190201
